FAERS Safety Report 4531737-1 (Version None)
Quarter: 2004Q4

REPORT INFORMATION
  Report Type: 
  Country: None (occurrence: None)
  Receive Date: 20041220
  Receipt Date: 20030821
  Transmission Date: 20050328
  Serious: Yes (Life-Threatening, Hospitalization)
  Sender: FDA-Public Use
  Company Number: BE-ROCHE-345137

PATIENT
  Age: 53 Year
  Sex: Male

DRUGS (2)
  1. INTERFERON ALFA-2A [Suspect]
     Route: 058
     Dates: start: 20020814, end: 20030716
  2. RIBAVIRIN [Suspect]
     Route: 048
     Dates: start: 20020814, end: 20030716

REACTIONS (1)
  - OESOPHAGEAL HAEMORRHAGE [None]
